FAERS Safety Report 6377980-0 (Version None)
Quarter: 2009Q3

REPORT INFORMATION
  Report Type: 
  Country: None (occurrence: None)
  Receive Date: 20090925
  Receipt Date: 20090915
  Transmission Date: 20100115
  Serious: Yes (Death)
  Sender: FDA-Public Use
  Company Number: US-TYCO HEALTHCARE/MALLINCKRODT-T200901756

PATIENT
  Age: 15 Year
  Sex: Male

DRUGS (1)
  1. METHYLIN [Suspect]
     Dosage: UNK, ONCE A DAY

REACTIONS (1)
  - ROAD TRAFFIC ACCIDENT [None]
